FAERS Safety Report 20135410 (Version 1)
Quarter: 2021Q4

REPORT INFORMATION
  Report Type: Spontaneous
  Country: US (occurrence: US)
  Receive Date: 20211201
  Receipt Date: 20211201
  Transmission Date: 20220303
  Serious: No
  Sender: FDA-Public Use
  Company Number: US-SPECGX-T202002913

PATIENT
  Sex: Male
  Weight: 77 kg

DRUGS (4)
  1. DEXTROAMPHET SACCHARAT, AMPHET ASPARTATE, DEXTROAMPHET SULFATE AND AMP [Suspect]
     Active Substance: AMPHETAMINE ASPARTATE\AMPHETAMINE SULFATE\DEXTROAMPHETAMINE SACCHARATE\DEXTROAMPHETAMINE SULFATE
     Indication: Attention deficit hyperactivity disorder
     Dosage: UNK (TOOK ONE TABLET)
     Route: 048
     Dates: start: 202010, end: 2020
  2. DEXTROAMPHET SACCHARAT, AMPHET ASPARTATE, DEXTROAMPHET SULFATE AND AMP [Suspect]
     Active Substance: AMPHETAMINE ASPARTATE\AMPHETAMINE SULFATE\DEXTROAMPHETAMINE SACCHARATE\DEXTROAMPHETAMINE SULFATE
     Dosage: 20 MILLIGRAM, QD
     Route: 048
     Dates: start: 2020
  3. BUSPAR [Concomitant]
     Active Substance: BUSPIRONE HYDROCHLORIDE
     Indication: Product used for unknown indication
     Dosage: UNK
     Route: 065
  4. HYDROXYZINE [Concomitant]
     Active Substance: HYDROXYZINE HYDROCHLORIDE
     Indication: Product used for unknown indication
     Dosage: UNK
     Route: 065

REACTIONS (26)
  - Emotional disorder [Recovered/Resolved]
  - Feeling abnormal [Recovered/Resolved]
  - Dysphemia [Recovered/Resolved]
  - Anxiety [Recovered/Resolved]
  - Abulia [Recovered/Resolved]
  - Amnesia [Recovered/Resolved]
  - Lethargy [Recovered/Resolved]
  - Loss of personal independence in daily activities [Recovered/Resolved]
  - Reading disorder [Recovered/Resolved]
  - Feeling of despair [Recovered/Resolved]
  - Psychiatric symptom [Recovered/Resolved]
  - Negative thoughts [Recovered/Resolved]
  - Tachyphrenia [Recovered/Resolved]
  - Dizziness [Recovered/Resolved]
  - Apathy [Recovered/Resolved]
  - Abnormal behaviour [Recovered/Resolved]
  - Headache [Recovered/Resolved]
  - Cognitive disorder [Recovered/Resolved]
  - Sensitisation [Recovered/Resolved]
  - Thought blocking [Recovered/Resolved]
  - Hypertension [Recovered/Resolved]
  - Aggression [Recovered/Resolved]
  - Irritability [Recovered/Resolved]
  - Palpitations [Recovered/Resolved]
  - Wrong technique in product usage process [Unknown]
  - Drug ineffective [Unknown]

NARRATIVE: CASE EVENT DATE: 20200101
